FAERS Safety Report 5345259-1 (Version None)
Quarter: 2007Q2

REPORT INFORMATION
  Report Type: 
  Country: None (occurrence: None)
  Receive Date: 20070601
  Receipt Date: 20070523
  Transmission Date: 20071010
  Serious: Yes (Death, Life-Threatening)
  Sender: FDA-Public Use
  Company Number: CLOF-10522

PATIENT
  Age: 50 Year
  Sex: Male
  Weight: 64 kg

DRUGS (5)
  1. CLOFARABINE. MFR: GENZYME [Suspect]
     Indication: ACUTE MYELOID LEUKAEMIA
     Dosage: 40 MG/M2 QD X 5; IV
     Route: 042
     Dates: start: 20070429, end: 20070503
  2. CYTARABINE [Suspect]
     Indication: ACUTE MYELOID LEUKAEMIA
     Dosage: 1740 MG DAILY; IV
     Route: 042
     Dates: start: 20070428, end: 20070502
  3. VANCOMYCIN HCL [Concomitant]
  4. AMPHOTERICIN B [Concomitant]
  5. ZOSYN. MFR: LEDERLE LABORATORIES [Concomitant]

REACTIONS (8)
  - ENTEROCOCCAL SEPSIS [None]
  - ERYTHEMA [None]
  - FEBRILE NEUTROPENIA [None]
  - LOCAL SWELLING [None]
  - PALMAR-PLANTAR ERYTHRODYSAESTHESIA SYNDROME [None]
  - PARAESTHESIA [None]
  - ROSACEA [None]
  - SKIN DISORDER [None]
